FAERS Safety Report 20119441 (Version 3)
Quarter: 2022Q1

REPORT INFORMATION
  Report Type: Spontaneous
  Country: US (occurrence: US)
  Receive Date: 20211126
  Receipt Date: 20220322
  Transmission Date: 20220424
  Serious: No
  Sender: FDA-Public Use
  Company Number: US-BIOGEN-2019BI00731879

PATIENT
  Age: 49 Year
  Sex: Female

DRUGS (2)
  1. TECFIDERA [Suspect]
     Active Substance: DIMETHYL FUMARATE
     Indication: Multiple sclerosis
     Route: 065
     Dates: start: 2016
  2. TECFIDERA [Suspect]
     Active Substance: DIMETHYL FUMARATE
     Route: 065
     Dates: start: 201909

REACTIONS (3)
  - Product dose omission issue [Unknown]
  - Fall [Recovered/Resolved]
  - Flushing [Unknown]

NARRATIVE: CASE EVENT DATE: 20190426
